FAERS Safety Report 5200906-X (Version None)
Quarter: 2007Q1

REPORT INFORMATION
  Report Type: 
  Country: None (occurrence: None)
  Receive Date: 20070108
  Receipt Date: 20061215
  Transmission Date: 20070707
  Serious: Yes (Other)
  Sender: FDA-Public Use
  Company Number: PHBS2006BE19605

PATIENT
  Sex: Male
  Weight: 70 kg

DRUGS (5)
  1. NEORAL [Suspect]
     Indication: ECZEMA
     Dosage: 100 MG, BID
     Dates: start: 20061028
  2. NEORAL [Suspect]
     Dosage: 125 MG, BID
  3. NEORAL [Suspect]
     Dosage: 100 MG, BID
  4. COLCHICINE [Suspect]
     Indication: GOUT
  5. DICLOFENAC SODIUM [Suspect]
     Indication: PAIN
     Dosage: UNK, IRD

REACTIONS (3)
  - BLOOD URIC ACID INCREASED [None]
  - DRUG INTERACTION [None]
  - GOUT [None]
